FAERS Safety Report 8261705-8 (Version None)
Quarter: 2012Q2

REPORT INFORMATION
  Report Type: 
  Country: None (occurrence: None)
  Receive Date: 20120405
  Receipt Date: 20120403
  Transmission Date: 20120825
  Serious: Yes (Congenital Anomaly)
  Sender: FDA-Public Use
  Company Number: GB-EISAI INC-E2090-02063-SPO-GB

PATIENT
  Sex: Female
  Weight: 2.97 kg

DRUGS (4)
  1. ZONEGRAN [Suspect]
     Dosage: UNKNOWN
     Route: 064
  2. CARBAMAZEPINE [Suspect]
     Dosage: UNKNOWN
     Route: 064
  3. CLOBAZAM [Suspect]
     Dosage: UNKNOWN
     Route: 064
  4. PHENOBARBITAL TAB [Suspect]
     Dosage: UNKNOWN
     Route: 064

REACTIONS (9)
  - CONGENITAL ANOMALY [None]
  - CONGENITAL TRACHEOMALACIA [None]
  - ANAL ATRESIA [None]
  - EPILEPSY [None]
  - ANORECTAL DISORDER [None]
  - KIDNEY MALFORMATION [None]
  - HYPOGLYCAEMIA [None]
  - MATERNAL EXPOSURE DURING PREGNANCY [None]
  - MICROCEPHALY [None]
